FAERS Safety Report 12100168 (Version 1)
Quarter: 2016Q1

REPORT INFORMATION
  Report Type: Spontaneous
  Country: US (occurrence: None)
  Receive Date: 20160219
  Receipt Date: 20160219
  Transmission Date: 20160526
  Serious: Yes (Other)
  Sender: FDA-Public Use
  Company Number: None

PATIENT
  Age: 70 Year
  Sex: Male

DRUGS (18)
  1. DIGOXIN. [Concomitant]
     Active Substance: DIGOXIN
  2. IPRATROPIUM [Concomitant]
     Active Substance: IPRATROPIUM
  3. DILTIAZEM [Concomitant]
     Active Substance: DILTIAZEM
  4. FLUTICASONE [Concomitant]
     Active Substance: FLUTICASONE\FLUTICASONE PROPIONATE
  5. LORAZEPAM. [Concomitant]
     Active Substance: LORAZEPAM
  6. TRACLEER [Suspect]
     Active Substance: BOSENTAN
     Indication: PULMONARY HYPERTENSION
     Route: 048
     Dates: start: 201007, end: 201601
  7. ONDANSETRON [Concomitant]
     Active Substance: ONDANSETRON
  8. WARFARIN [Concomitant]
     Active Substance: WARFARIN
  9. ATENOLOL. [Concomitant]
     Active Substance: ATENOLOL
  10. HYDROCODONE BITARTRATE AND ACETAMINOPHEN [Concomitant]
     Active Substance: ACETAMINOPHEN\HYDROCODONE BITARTRATE
  11. PREDNISONE. [Concomitant]
     Active Substance: PREDNISONE
  12. TIOTROPIUM [Concomitant]
     Active Substance: TIOTROPIUM
  13. ISOSORBIDE MONONITRATE. [Concomitant]
     Active Substance: ISOSORBIDE MONONITRATE
  14. REGULAR INSULIN [Concomitant]
     Active Substance: INSULIN NOS
  15. FLUTICASONE/SALMETEROL [Concomitant]
     Active Substance: FLUTICASONE PROPIONATE\SALMETEROL XINAFOATE
  16. TACROLIMUS. [Concomitant]
     Active Substance: TACROLIMUS
  17. ATORVASTATIN [Concomitant]
     Active Substance: ATORVASTATIN
  18. FAMOTIDINE. [Concomitant]
     Active Substance: FAMOTIDINE

REACTIONS (1)
  - Drug ineffective [None]

NARRATIVE: CASE EVENT DATE: 20160121
